FAERS Safety Report 4389347-5 (Version None)
Quarter: 2004Q2

REPORT INFORMATION
  Report Type: 
  Country: None (occurrence: None)
  Receive Date: 20040630
  Receipt Date: 20040618
  Transmission Date: 20050107
  Serious: Yes (Other)
  Sender: FDA-Public Use
  Company Number: 2004220024JP

PATIENT
  Sex: Female

DRUGS (1)
  1. NASANYL (NAFARELIN ACETATE) SPRAY [Suspect]
     Dosage: NASAL
     Route: 045
     Dates: start: 20020101

REACTIONS (1)
  - FIBROUS DYSPLASIA OF BONE [None]
